FAERS Safety Report 17335606 (Version 2)
Quarter: 2020Q1

REPORT INFORMATION
  Report Type: Report from Study
  Country: US (occurrence: US)
  Receive Date: 20200128
  Receipt Date: 20200205
  Transmission Date: 20200409
  Serious: Yes (Other)
  Sender: FDA-Public Use
  Company Number: US-TEVA-2020-US-1175338

PATIENT

DRUGS (2)
  1. FLUDARABINE [Suspect]
     Active Substance: FLUDARABINE PHOSPHATE
     Indication: LEUKAEMIA
     Dosage: RECEIVED ONE ROUND OF CHEMOTHERAPY, AS A PART OF FLAG REGIMEN
     Route: 065
  2. ARA-C [Suspect]
     Active Substance: CYTARABINE
     Indication: LEUKAEMIA
     Dosage: 10 G/M2; RECEIVED ONE ROUND OF CHEMOTHERAPY, AS A PART OF FLAG REGIMEN
     Route: 065

REACTIONS (1)
  - Staphylococcal bacteraemia [Unknown]
